FAERS Safety Report 15725145 (Version 2)
Quarter: 2019Q1

REPORT INFORMATION
  Report Type: Spontaneous
  Country: FR (occurrence: FR)
  Receive Date: 20181215
  Receipt Date: 20190308
  Transmission Date: 20190417
  Serious: Yes (Hospitalization, Other)
  Sender: FDA-Public Use
  Company Number: FR-AUROBINDO-AUR-APL-2018-030700

PATIENT

DRUGS (4)
  1. QUETIAPINE. [Suspect]
     Active Substance: QUETIAPINE
     Indication: MENTAL DISORDER
     Dosage: 300 MILLIGRAM, UNK
     Route: 048
     Dates: start: 20171106
  2. VALIUM [Suspect]
     Active Substance: DIAZEPAM
     Indication: ALCOHOL WITHDRAWAL SYNDROME
     Dosage: 10 MILLIGRAM, 3 TIMES A DAY
     Route: 065
     Dates: start: 20171106, end: 20171106
  3. IMOVANE [Suspect]
     Active Substance: ZOPICLONE
     Indication: INSOMNIA
     Dosage: 8 MILLIGRAM, ONCE A DAY
     Route: 065
  4. VITAMIN B1 [Concomitant]
     Active Substance: THIAMINE HYDROCHLORIDE
     Indication: PRODUCT USED FOR UNKNOWN INDICATION
     Dosage: UNK
     Route: 065

REACTIONS (12)
  - Pneumonia aspiration [Unknown]
  - Nystagmus [Recovered/Resolved]
  - Agitation [Recovering/Resolving]
  - Ataxia [Recovering/Resolving]
  - Wernicke^s encephalopathy [Recovered/Resolved]
  - Confusional state [Recovering/Resolving]
  - Intentional product misuse [Unknown]
  - Intentional overdose [Unknown]
  - Alcohol poisoning [Unknown]
  - Gamma-glutamyltransferase increased [Unknown]
  - Toxicity to various agents [Recovering/Resolving]
  - Altered state of consciousness [Recovered/Resolved]

NARRATIVE: CASE EVENT DATE: 20171106
